FAERS Safety Report 15543321 (Version 2)
Quarter: 2019Q1

REPORT INFORMATION
  Report Type: Spontaneous
  Country: US (occurrence: US)
  Receive Date: 20181023
  Receipt Date: 20190121
  Transmission Date: 20190417
  Serious: Yes (Hospitalization, Disabling)
  Sender: FDA-Public Use
  Company Number: US-OTSUKA-2018_023901

PATIENT
  Age: 32 Year
  Sex: Female
  Weight: 53.5 kg

DRUGS (18)
  1. ABILIFY [Suspect]
     Active Substance: ARIPIPRAZOLE
     Indication: ANXIETY
  2. ABILIFY [Suspect]
     Active Substance: ARIPIPRAZOLE
     Indication: AFFECTIVE DISORDER
     Dosage: 20 MG, QD
     Route: 065
     Dates: start: 20120601, end: 20140525
  3. LEXAPRO [Concomitant]
     Active Substance: ESCITALOPRAM OXALATE
     Indication: PRODUCT USED FOR UNKNOWN INDICATION
     Dosage: 10 MG, QD (EVERY MORNING)
     Route: 065
  4. DEPAKOTE [Concomitant]
     Active Substance: DIVALPROEX SODIUM
     Indication: PRODUCT USED FOR UNKNOWN INDICATION
     Dosage: 500 MG, QD (EVERY BED TIME) (ER FORMULATION)
     Route: 065
  5. LEXAPRO [Concomitant]
     Active Substance: ESCITALOPRAM OXALATE
     Dosage: 10 MG, QD (EVERY BED TIME)
     Route: 065
  6. ABILIFY [Suspect]
     Active Substance: ARIPIPRAZOLE
     Indication: BIPOLAR DISORDER
  7. ABILIFY [Suspect]
     Active Substance: ARIPIPRAZOLE
     Indication: MAJOR DEPRESSION
  8. VITAMIN B12 [Concomitant]
     Active Substance: CYANOCOBALAMIN
     Indication: PRODUCT USED FOR UNKNOWN INDICATION
     Dosage: UNK
     Route: 065
  9. ARIPIPRAZOLE. [Concomitant]
     Active Substance: ARIPIPRAZOLE
     Indication: PRODUCT USED FOR UNKNOWN INDICATION
     Dosage: UNK
     Route: 065
  10. DEPAKOTE [Concomitant]
     Active Substance: DIVALPROEX SODIUM
     Dosage: 1000 MG, QD (EVERY BED TIME) (ER FORMULATION)
     Route: 065
  11. TRAZODONE [Concomitant]
     Active Substance: TRAZODONE HYDROCHLORIDE
     Dosage: 50 MG, BID (AT BED TIME AS NEEDED)
     Route: 048
  12. HALDOL DECANOATE [Concomitant]
     Active Substance: HALOPERIDOL DECANOATE
     Indication: PRODUCT USED FOR UNKNOWN INDICATION
     Dosage: 50 MG, UNK (EVERY 4 WEEKS)
     Route: 048
  13. HALDOL DECANOATE [Concomitant]
     Active Substance: HALOPERIDOL DECANOATE
     Dosage: 5MG, QD (TWO TABS EVERY BED TIME)
     Route: 048
  14. BENZTROPINE. [Concomitant]
     Active Substance: BENZTROPINE
     Indication: PRODUCT USED FOR UNKNOWN INDICATION
     Dosage: 1 MG, BID
     Route: 048
  15. ABILIFY [Suspect]
     Active Substance: ARIPIPRAZOLE
     Indication: SCHIZOPHRENIA
  16. TRAZODONE [Concomitant]
     Active Substance: TRAZODONE HYDROCHLORIDE
     Indication: PRODUCT USED FOR UNKNOWN INDICATION
     Dosage: 100 MG, QD (1/2 TO 1 TABLET AS NEEDED BEFORE SLEEP)
     Route: 048
  17. COGETIN [Concomitant]
     Indication: PRODUCT USED FOR UNKNOWN INDICATION
     Dosage: 1 MG, BID
     Route: 065
  18. BENZTROPINE. [Concomitant]
     Active Substance: BENZTROPINE
     Dosage: 0.5 MG, BID
     Route: 048

REACTIONS (21)
  - Paranoia [Unknown]
  - Compulsive sexual behaviour [Recovered/Resolved]
  - Aggression [Unknown]
  - Tremor [Recovering/Resolving]
  - Disability [Unknown]
  - Mental disorder [Unknown]
  - Compulsive shopping [Recovered/Resolved]
  - Decreased appetite [Unknown]
  - Gambling disorder [Recovered/Resolved]
  - Economic problem [Unknown]
  - Decreased activity [Unknown]
  - Sexual dysfunction [Recovered/Resolved]
  - Eating disorder [Recovered/Resolved]
  - Heart rate increased [Unknown]
  - Bankruptcy [Unknown]
  - Blood pressure decreased [Unknown]
  - Therapy cessation [Unknown]
  - Drug effective for unapproved indication [Unknown]
  - Anxiety [Recovered/Resolved]
  - Obsessive-compulsive disorder [Unknown]
  - Loss of employment [Unknown]

NARRATIVE: CASE EVENT DATE: 20120701
